FAERS Safety Report 8844435 (Version 1)
Quarter: 2012Q4

REPORT INFORMATION
  Report Type: Spontaneous
  Country: UG (occurrence: None)
  Receive Date: 20121012
  Receipt Date: 20121012
  Transmission Date: 20130627
  Serious: Yes (Death, Hospitalization)
  Sender: FDA-Public Use
  Company Number: USA/USA/12/0026152

PATIENT
  Age: 35 Year
  Sex: Male

DRUGS (8)
  1. FLUCONAZOLE [Suspect]
     Indication: CRYPTOCOCCAL MENINGITIS
     Dosage: 400 mg, 1 in 1 d
  2. FLUCONAZOLE [Suspect]
     Indication: CRYPTOCOCCAL MENINGITIS
  3. FLUCONAZOLE [Suspect]
     Indication: CRYPTOCOCCAL MENINGITIS
  4. FLUCONAZOLE [Suspect]
     Indication: CRYPTOCOCCAL MENINGITIS
  5. AMPHOTERICIN B [Suspect]
     Indication: CRYPTOCOCCAL MENINGITIS
     Dosage: 0.7 mg/kg, 1 in 1 d
  6. ZIDOVUDINE [Suspect]
     Indication: ANTIRETROVIRAL THERAPY
  7. LAMIVUDINE [Suspect]
     Indication: ANTIRETROVIRAL THERAPY
  8. EFAVIRENZ [Suspect]
     Indication: ANTIRETROVIRAL THERAPY

REACTIONS (6)
  - Immune reconstitution inflammatory syndrome [None]
  - Meningitis cryptococcal [None]
  - Drug resistance [None]
  - Urinary incontinence [None]
  - Hydrocephalus [None]
  - Cerebral cyst [None]
